APPROVED DRUG PRODUCT: MPI DTPA KIT - CHELATE
Active Ingredient: TECHNETIUM TC-99M PENTETATE KIT
Strength: N/A
Dosage Form/Route: INJECTABLE;INJECTION
Application: N017255 | Product #001
Applicant: GE HEALTHCARE
Approved: Approved Prior to Jan 1, 1982 | RLD: No | RS: No | Type: DISCN